FAERS Safety Report 8439006-4 (Version None)
Quarter: 2012Q2

REPORT INFORMATION
  Report Type: 
  Country: None (occurrence: None)
  Receive Date: 20120615
  Receipt Date: 20120607
  Transmission Date: 20120825
  Serious: Yes (Death, Other)
  Sender: FDA-Public Use
  Company Number: US-BAYER-2012-058474

PATIENT
  Age: 77 Year
  Sex: Male
  Weight: 105 kg

DRUGS (16)
  1. PROTAMINE SULFATE [Concomitant]
     Dosage: 320 MG, UNK
     Route: 042
     Dates: start: 19981204, end: 19981204
  2. SUFENTANIL CITRATE [Concomitant]
     Dosage: UNK
     Route: 042
     Dates: start: 19981204, end: 19981204
  3. NORMOSOL [Concomitant]
     Dosage: 1700 ML, UNK
     Route: 042
     Dates: start: 19981204, end: 19981204
  4. TEGRETOL [Concomitant]
     Indication: CONVULSION
  5. HEXABRIX [Concomitant]
     Indication: CATHETERISATION CARDIAC
     Dosage: 200 ML, UNK
     Dates: start: 19981202
  6. TRASYLOL [Suspect]
     Dosage: 200 ML BYPASS PRIME
     Route: 042
     Dates: start: 19981204
  7. KEFZOL [Concomitant]
     Dosage: 1 G, UNK
     Route: 042
     Dates: start: 19981204, end: 19981204
  8. HEPARIN [Concomitant]
     Dosage: 54000 U, UNK
     Dates: start: 19981204, end: 19981204
  9. VANCOMYCIN [Concomitant]
     Dosage: 500 MG, UNK
     Route: 042
     Dates: start: 19981204, end: 19981204
  10. LASIX [Concomitant]
     Dosage: 40 MG, UNK
     Dates: start: 19981204, end: 19981204
  11. TRASYLOL [Suspect]
     Dosage: 200 ML OVER 30 MINUTES FOLLOWED BY 50 ML/HOUR INFUSION
     Route: 042
     Dates: start: 19981204
  12. VERSED [Concomitant]
     Dosage: 12.5 MG, UNK
     Route: 042
     Dates: start: 19981204, end: 19981204
  13. TRASYLOL [Suspect]
     Indication: AORTIC VALVE REPLACEMENT
     Dosage: 1 ML INITIAL DOSE
     Route: 042
     Dates: start: 19981204, end: 19981204
  14. CEFAZOLIN [Concomitant]
     Dosage: 1 G, UNK
     Dates: start: 19981204, end: 19981204
  15. DOPAMINE HCL [Concomitant]
     Dosage: UNK
     Route: 042
     Dates: start: 19981204
  16. SOLU-MEDROL [Concomitant]
     Dosage: 1 G, UNK
     Dates: start: 19981204, end: 19981204

REACTIONS (4)
  - BLOOD POTASSIUM INCREASED [None]
  - ACUTE RESPIRATORY FAILURE [None]
  - RENAL FAILURE [None]
  - RENAL FAILURE CHRONIC [None]
